FAERS Safety Report 12010037 (Version 1)
Quarter: 2016Q1

REPORT INFORMATION
  Report Type: Spontaneous
  Country: US (occurrence: US)
  Receive Date: 20160205
  Receipt Date: 20160205
  Transmission Date: 20160526
  Serious: No
  Sender: FDA-Public Use
  Company Number: US-009507513-1601USA011889

PATIENT
  Age: 57 Year
  Sex: Female

DRUGS (8)
  1. BELSOMRA [Suspect]
     Active Substance: SUVOREXANT
     Dosage: ONE BOX OF 30 TABLETS
     Route: 048
     Dates: start: 201601, end: 2016
  2. BELSOMRA [Suspect]
     Active Substance: SUVOREXANT
     Dosage: 2 SEPARATE STRIPS OF BLISTER PACKS
     Route: 048
     Dates: start: 201601, end: 2016
  3. CENTRUM (MINERALS (UNSPECIFIED) (+) VITAMINS (UNSPECIFIED)) [Concomitant]
     Dosage: UNK
  4. BELSOMRA [Suspect]
     Active Substance: SUVOREXANT
     Indication: INSOMNIA
     Dosage: HALF 10 MG TABLET
     Route: 048
     Dates: start: 201601, end: 2016
  5. BELSOMRA [Suspect]
     Active Substance: SUVOREXANT
     Dosage: 2 SEPARATE STRIPS OF BLISTER PACKS
     Route: 048
     Dates: start: 201601, end: 2016
  6. EQUATE SLEEP AID [Concomitant]
     Active Substance: DOXYLAMINE SUCCINATE
  7. BELSOMRA [Suspect]
     Active Substance: SUVOREXANT
     Dosage: FULL 10 MG TABLET
     Route: 048
     Dates: start: 201601, end: 2016
  8. BELSOMRA [Suspect]
     Active Substance: SUVOREXANT
     Dosage: 2 X 10 MG TABLETS
     Route: 048
     Dates: start: 201601, end: 2016

REACTIONS (3)
  - Drug ineffective [Unknown]
  - Wrong technique in product usage process [Unknown]
  - Maternal exposure during pregnancy [Unknown]

NARRATIVE: CASE EVENT DATE: 201601
